FAERS Safety Report 24060753 (Version 3)
Quarter: 2024Q4

REPORT INFORMATION
  Report Type: Spontaneous
  Country: US (occurrence: US)
  Receive Date: 20240708
  Receipt Date: 20241230
  Transmission Date: 20250115
  Serious: Yes (Other)
  Sender: PFIZER
  Company Number: US-PFIZER INC-202200212488

PATIENT
  Age: 75 Year
  Sex: Female

DRUGS (3)
  1. TIKOSYN [Suspect]
     Active Substance: DOFETILIDE
     Dosage: 250 MG (TAKE TWO DIFFERENT MILLIGRAMS. 250 IN THE MORNING)
  2. TIKOSYN [Suspect]
     Active Substance: DOFETILIDE
     Dosage: 125 MG (TAKE TWO DIFFERENT MILLIGRAMS. 250 IN THE MORNING)
  3. TIKOSYN [Suspect]
     Active Substance: DOFETILIDE
     Dosage: 125 MG, 2X/DAY

REACTIONS (5)
  - Upper limb fracture [Unknown]
  - Hand fracture [Unknown]
  - Off label use [Unknown]
  - Overdose [Unknown]
  - Clumsiness [Unknown]
